FAERS Safety Report 13368513 (Version 2)
Quarter: 2017Q1

REPORT INFORMATION
  Report Type: Spontaneous
  Country: US (occurrence: US)
  Receive Date: 20170324
  Receipt Date: 20170330
  Transmission Date: 20170429
  Serious: No
  Sender: FDA-Public Use
  Company Number: US-PFIZER INC-2016319350

PATIENT
  Age: 74 Year
  Sex: Female
  Weight: 54 kg

DRUGS (4)
  1. FASLODEX [Concomitant]
     Active Substance: FULVESTRANT
     Dosage: UNK
  2. IBRANCE [Suspect]
     Active Substance: PALBOCICLIB
     Dosage: 75 MG, CYCLIC (ONCE A DAY FOR 21 DAYS AND THEN OFF FOR 7 DAYS)
     Dates: start: 201605
  3. IBRANCE [Suspect]
     Active Substance: PALBOCICLIB
     Indication: BREAST CANCER METASTATIC
     Dosage: 125 MG, ALTERNATE DAY
  4. IBRANCE [Suspect]
     Active Substance: PALBOCICLIB
     Dosage: 100 MG, 1X/DAY

REACTIONS (4)
  - White blood cell count increased [Not Recovered/Not Resolved]
  - Intentional product misuse [Unknown]
  - Animal bite [Unknown]
  - Infected bite [Unknown]

NARRATIVE: CASE EVENT DATE: 20170312
